FAERS Safety Report 6064989-X (Version None)
Quarter: 2009Q1

REPORT INFORMATION
  Report Type: 
  Country: None (occurrence: None)
  Receive Date: 20090204
  Receipt Date: 20090122
  Transmission Date: 20090719
  Serious: Yes (Other)
  Sender: FDA-Public Use
  Company Number: CA-ASTRAZENECA-2009UW02836

PATIENT
  Age: 36 Year
  Sex: Female

DRUGS (1)
  1. EMLA [Suspect]
     Route: 061

REACTIONS (4)
  - CYANOSIS [None]
  - DIZZINESS [None]
  - HEART RATE INCREASED [None]
  - METHAEMOGLOBINAEMIA [None]
